FAERS Safety Report 8335373-0 (Version None)
Quarter: 2012Q2

REPORT INFORMATION
  Report Type: 
  Country: None (occurrence: None)
  Receive Date: 20120503
  Receipt Date: 20120423
  Transmission Date: 20120825
  Serious: Yes (Hospitalization, Disabling, Other)
  Sender: FDA-Public Use
  Company Number: US-MERCK-1012USA02523

PATIENT
  Age: 48 Year
  Sex: Female
  Weight: 79 kg

DRUGS (7)
  1. FOSAMAX [Suspect]
     Indication: OSTEOPOROSIS
     Route: 048
     Dates: start: 19950101, end: 20090401
  2. FOSAMAX [Suspect]
     Indication: OSTEOPENIA
     Route: 048
     Dates: start: 19950101, end: 20090401
  3. VITAMINS (UNSPECIFIED) [Concomitant]
     Route: 065
  4. FOSAMAX PLUS D [Suspect]
     Indication: OSTEOPENIA
     Route: 065
  5. SYNTHROID [Concomitant]
     Indication: HYPOTHYROIDISM
     Route: 048
  6. CALCIUM (UNSPECIFIED) AND VITAMIN D (UNSPECIFIED) [Concomitant]
     Route: 065
  7. VITA C [Concomitant]
     Route: 065

REACTIONS (59)
  - FOOT FRACTURE [None]
  - INTERVERTEBRAL DISC PROTRUSION [None]
  - LOW TURNOVER OSTEOPATHY [None]
  - JOINT EFFUSION [None]
  - SPINAL OSTEOARTHRITIS [None]
  - HYPERTENSION [None]
  - HYPERSENSITIVITY [None]
  - CHOLELITHIASIS [None]
  - THROMBOPHLEBITIS SUPERFICIAL [None]
  - OVARIAN CYST [None]
  - CONTUSION [None]
  - GASTROOESOPHAGEAL REFLUX DISEASE [None]
  - INAPPROPRIATE SCHEDULE OF DRUG ADMINISTRATION [None]
  - NEUROPATHY PERIPHERAL [None]
  - BACK INJURY [None]
  - BLISTER [None]
  - COLITIS [None]
  - JOINT CREPITATION [None]
  - WEIGHT INCREASED [None]
  - ROAD TRAFFIC ACCIDENT [None]
  - DIARRHOEA [None]
  - PATELLOFEMORAL PAIN SYNDROME [None]
  - FEMUR FRACTURE [None]
  - ARTHRALGIA [None]
  - POLYARTHRITIS [None]
  - MIGRAINE [None]
  - RIB FRACTURE [None]
  - MUSCULOSKELETAL CHEST PAIN [None]
  - BREAST CYST [None]
  - HUMERUS FRACTURE [None]
  - FRACTURE NONUNION [None]
  - LIPIDS INCREASED [None]
  - ORAL INFECTION [None]
  - CALCIUM DEFICIENCY [None]
  - BONE MARROW DISORDER [None]
  - UPPER LIMB FRACTURE [None]
  - DEEP VEIN THROMBOSIS [None]
  - INTRAOSSEOUS ANGIOMA [None]
  - VITAMIN D DEFICIENCY [None]
  - PAIN [None]
  - DRUG INEFFECTIVE [None]
  - COUGH [None]
  - HYPERHIDROSIS [None]
  - ARTERIOSPASM CORONARY [None]
  - SINUS TACHYCARDIA [None]
  - LEFT VENTRICULAR HYPERTROPHY [None]
  - OSTEOARTHRITIS [None]
  - OTITIS MEDIA [None]
  - INSOMNIA [None]
  - BREAST CANCER [None]
  - FALL [None]
  - VEIN DISORDER [None]
  - PROCEDURAL COMPLICATION [None]
  - ASTHMA [None]
  - EXOSTOSIS [None]
  - CHEST PAIN [None]
  - SYNCOPE [None]
  - SINUSITIS [None]
  - DRUG INTOLERANCE [None]
